FAERS Safety Report 11584371 (Version 2)
Quarter: 2015Q4

REPORT INFORMATION
  Report Type: Report from Study
  Country: US (occurrence: US)
  Receive Date: 20151001
  Receipt Date: 20151117
  Transmission Date: 20160304
  Serious: Yes (Hospitalization)
  Sender: FDA-Public Use
  Company Number: US-BIOGENIDEC-2015BI131103

PATIENT
  Age: 64 Year
  Sex: Male

DRUGS (1)
  1. TYSABRI [Suspect]
     Active Substance: NATALIZUMAB
     Indication: MULTIPLE SCLEROSIS
     Route: 042
     Dates: start: 20140815, end: 20150701

REACTIONS (10)
  - Dehydration [Unknown]
  - Renal failure [Unknown]
  - Memory impairment [Unknown]
  - Sepsis [Recovered/Resolved]
  - Leukocytosis [Unknown]
  - Asthenia [Unknown]
  - Loss of consciousness [Recovered/Resolved]
  - Fall [Recovered/Resolved]
  - Abasia [Unknown]
  - Acidosis [Unknown]

NARRATIVE: CASE EVENT DATE: 201508
